FAERS Safety Report 5235326-5 (Version None)
Quarter: 2007Q1

REPORT INFORMATION
  Report Type: 
  Country: None (occurrence: None)
  Receive Date: 20070207
  Receipt Date: 20070207
  Transmission Date: 20070707
  Serious: Yes (Life-Threatening, Hospitalization, Disabling)
  Sender: FDA-Public Use
  Company Number: None

PATIENT
  Age: 19 Year
  Sex: Female
  Weight: 65.9984 kg

DRUGS (1)
  1. BACTRIM DS [Suspect]
     Indication: URINARY TRACT INFECTION
     Dosage: 1 TABLET  BID  PO  (1 DOSE)
     Route: 048
     Dates: start: 20060929, end: 20060930

REACTIONS (3)
  - NAUSEA [None]
  - SERUM SICKNESS [None]
  - VOMITING [None]
